FAERS Safety Report 23783329 (Version 1)
Quarter: 2024Q2

REPORT INFORMATION
  Report Type: Spontaneous
  Country: US (occurrence: US)
  Receive Date: 20240425
  Receipt Date: 20240425
  Transmission Date: 20240716
  Serious: No
  Sender: FDA-Public Use
  Company Number: US-HALEON-2167030

PATIENT
  Age: 50 Year

DRUGS (1)
  1. SENSODYNE PRONAMEL ACTIVE SHIELD FRESH MINT [Suspect]
     Active Substance: POTASSIUM NITRATE\SODIUM FLUORIDE
     Indication: Product used for unknown indication
     Dosage: 1 - APPLICATION (AP)

REACTIONS (1)
  - Oral mucosal exfoliation [Unknown]
